FAERS Safety Report 5121609-6 (Version None)
Quarter: 2006Q4

REPORT INFORMATION
  Report Type: 
  Country: None (occurrence: None)
  Receive Date: 20061006
  Receipt Date: 20060928
  Transmission Date: 20070319
  Serious: Yes (Life-Threatening, Other)
  Sender: FDA-Public Use
  Company Number: CA-AVENTIS-200614998EU

PATIENT
  Age: 55 Year
  Sex: Female

DRUGS (7)
  1. LOVENOX                            /00889602/ [Suspect]
     Indication: PULMONARY EMBOLISM
     Route: 058
     Dates: start: 20060928, end: 20060928
  2. FOSAMAX [Concomitant]
     Route: 048
  3. ASPIRIN [Concomitant]
     Route: 048
  4. ATACAND                            /01349502/ [Concomitant]
     Route: 048
  5. LASIX                              /00032601/ [Concomitant]
     Route: 048
  6. LIPITOR [Concomitant]
     Route: 048
  7. METOPROLOL TARTRATE [Concomitant]
     Route: 048

REACTIONS (1)
  - ENDOCARDITIS BACTERIAL [None]
